FAERS Safety Report 12816781 (Version 2)
Quarter: 2016Q4

REPORT INFORMATION
  Report Type: Spontaneous
  Country: PL (occurrence: PL)
  Receive Date: 20161005
  Receipt Date: 20161117
  Transmission Date: 20170207
  Serious: Yes (Hospitalization)
  Sender: FDA-Public Use
  Company Number: PL-MYLANLABS-2016M1042673

PATIENT

DRUGS (3)
  1. LITHIUM. [Interacting]
     Active Substance: LITHIUM
     Indication: SCHIZOAFFECTIVE DISORDER
  2. CLOZAPINE MYLAN [Suspect]
     Active Substance: CLOZAPINE
     Indication: SCHIZOAFFECTIVE DISORDER
     Dosage: 300 MG, QD
  3. VALPROATE SODIUM SANDOZ [Interacting]
     Active Substance: VALPROATE SODIUM
     Indication: SCHIZOAFFECTIVE DISORDER
     Dosage: 1500 MG, QD

REACTIONS (7)
  - Condition aggravated [Unknown]
  - Mental disorder [Unknown]
  - Salivary hypersecretion [Unknown]
  - Electrocardiogram abnormal [Unknown]
  - Labelled drug-drug interaction medication error [Unknown]
  - Extrapyramidal disorder [Unknown]
  - Somnolence [Unknown]
